FAERS Safety Report 22180424 (Version 1)
Quarter: 2023Q2

REPORT INFORMATION
  Report Type: Spontaneous
  Country: US (occurrence: US)
  Receive Date: 20230406
  Receipt Date: 20230406
  Transmission Date: 20230722
  Serious: No
  Sender: FDA-Public Use
  Company Number: US-JNJFOC-20230375237

PATIENT
  Sex: Female

DRUGS (2)
  1. STELARA [Suspect]
     Active Substance: USTEKINUMAB
     Indication: Crohn^s disease
     Route: 040
  2. STELARA [Suspect]
     Active Substance: USTEKINUMAB
     Route: 040

REACTIONS (7)
  - Injection site reaction [Unknown]
  - Chest discomfort [Unknown]
  - Throat tightness [Unknown]
  - Dyspnoea [Unknown]
  - Anxiety [Unknown]
  - Flushing [Unknown]
  - Infusion related reaction [Unknown]

NARRATIVE: CASE EVENT DATE: 20210501
